FAERS Safety Report 8103693-0 (Version None)
Quarter: 2012Q1

REPORT INFORMATION
  Report Type: 
  Country: None (occurrence: None)
  Receive Date: 20120201
  Receipt Date: 20120126
  Transmission Date: 20120608
  Serious: Yes (Disabling, Other)
  Sender: FDA-Public Use
  Company Number: GB-PFIZER INC-2011157988

PATIENT
  Age: 44 Year
  Sex: Female
  Weight: 65 kg

DRUGS (12)
  1. MINOXIDIL [Suspect]
     Indication: ALOPECIA
     Dosage: UNK
     Route: 061
     Dates: start: 20080601, end: 20101101
  2. GLUCOSAMINE [Concomitant]
  3. CITALOPRAM [Concomitant]
     Indication: DEPRESSION
  4. MIRTAZAPINE [Concomitant]
     Indication: DEPRESSION
  5. ESCITALOPRAM [Concomitant]
     Indication: DEPRESSION
  6. SEROQUEL [Concomitant]
     Dosage: 400 MG, UNK
     Dates: start: 20110101
  7. ZOPICLONE [Concomitant]
     Indication: INSOMNIA
     Dosage: 7.5 MG, UNK
     Route: 048
     Dates: start: 20100901, end: 20101101
  8. DIAZEPAM [Concomitant]
  9. CALCIUM [Concomitant]
     Dosage: UNK
     Dates: start: 20111001, end: 20111201
  10. VITAMIN B NOS [Concomitant]
     Dosage: UNK
     Dates: start: 20111001, end: 20111201
  11. SEROQUEL [Concomitant]
     Dosage: 50 MG, UNK
  12. CHONDROITIN [Concomitant]

REACTIONS (43)
  - OEDEMA PERIPHERAL [None]
  - ACROCHORDON [None]
  - HYPERTRICHOSIS [None]
  - DISTURBANCE IN ATTENTION [None]
  - FATIGUE [None]
  - HYPOAESTHESIA [None]
  - TEMPERATURE INTOLERANCE [None]
  - TACHYCARDIA [None]
  - ARTHRALGIA [None]
  - HYPOTONIA [None]
  - AMENORRHOEA [None]
  - PARAESTHESIA [None]
  - VASODILATATION [None]
  - DEPRESSED MOOD [None]
  - ABDOMINAL PAIN [None]
  - ABDOMINAL DISTENSION [None]
  - HYPERHIDROSIS [None]
  - VISUAL ACUITY REDUCED [None]
  - INSOMNIA [None]
  - RESTLESSNESS [None]
  - SKIN DISCOLOURATION [None]
  - SKIN SWELLING [None]
  - DEPRESSION [None]
  - SKIN ODOUR ABNORMAL [None]
  - BONE DISORDER [None]
  - RHINORRHOEA [None]
  - ANXIETY [None]
  - NAUSEA [None]
  - BLISTER [None]
  - COUGH [None]
  - PAIN [None]
  - SCAR [None]
  - CONVULSION [None]
  - WEIGHT INCREASED [None]
  - BONE PAIN [None]
  - ARTHROPATHY [None]
  - ACNE [None]
  - HAEMORRHAGE [None]
  - CONTUSION [None]
  - DIARRHOEA [None]
  - GAIT DISTURBANCE [None]
  - HEART RATE IRREGULAR [None]
  - PALPITATIONS [None]
